FAERS Safety Report 12768813 (Version 4)
Quarter: 2016Q4

REPORT INFORMATION
  Report Type: Spontaneous
  Country: US (occurrence: US)
  Receive Date: 20160921
  Receipt Date: 20161122
  Transmission Date: 20170207
  Serious: Yes (Hospitalization, Other)
  Sender: FDA-Public Use
  Company Number: PHEH2016US023048

PATIENT
  Age: 68 Year
  Sex: Male

DRUGS (24)
  1. ASPIRIN. [Concomitant]
     Active Substance: ASPIRIN
     Indication: PRODUCT USED FOR UNKNOWN INDICATION
     Dosage: 81 MG, QD
     Route: 048
  2. LANTUS [Concomitant]
     Active Substance: INSULIN GLARGINE
     Indication: PRODUCT USED FOR UNKNOWN INDICATION
     Dosage: 7 U, AT BED TIME
     Route: 058
  3. BOSULIF [Suspect]
     Active Substance: BOSUTINIB MONOHYDRATE
     Indication: CHRONIC MYELOID LEUKAEMIA
     Dosage: 400 MG, QD
     Route: 048
     Dates: start: 20150527, end: 20160705
  4. PREVACID [Concomitant]
     Active Substance: LANSOPRAZOLE
     Indication: PRODUCT USED FOR UNKNOWN INDICATION
     Dosage: 15 MG, UNK
     Route: 048
  5. METOPROLOL TARTRATE. [Concomitant]
     Active Substance: METOPROLOL TARTRATE
     Indication: PRODUCT USED FOR UNKNOWN INDICATION
     Dosage: 0.5 DF, QD
     Route: 048
  6. LIPITOR [Concomitant]
     Active Substance: ATORVASTATIN CALCIUM
     Indication: PRODUCT USED FOR UNKNOWN INDICATION
     Dosage: 40 MG, QD
     Route: 048
  7. HUMALOG [Concomitant]
     Active Substance: INSULIN LISPRO
     Indication: PRODUCT USED FOR UNKNOWN INDICATION
     Dosage: 7 U, AT BED TIME
     Route: 058
  8. PRINIVIL [Concomitant]
     Active Substance: LISINOPRIL
     Indication: PRODUCT USED FOR UNKNOWN INDICATION
     Dosage: 10 MG, QD
     Route: 048
  9. EXCEDRIN [Concomitant]
     Active Substance: ACETAMINOPHEN\ASPIRIN\CAFFEINE
     Indication: MIGRAINE
     Dosage: 1 DF, Q4H AS NEEDED
     Route: 065
  10. LOMOTIL//LOPERAMIDE HYDROCHLORIDE [Concomitant]
     Indication: PRODUCT USED FOR UNKNOWN INDICATION
     Dosage: 2.5 TO 0.25 MG, QID, PRN
     Route: 048
  11. TASIGNA [Suspect]
     Active Substance: NILOTINIB
     Indication: CHRONIC MYELOID LEUKAEMIA
     Dosage: UNK UNK, QD
     Route: 065
     Dates: start: 201103
  12. TYLENOL WITH CODEINE [Concomitant]
     Active Substance: ACETAMINOPHEN\CODEINE PHOSPHATE
     Indication: PAIN
     Dosage: UNK UNK, PRN
     Route: 065
  13. CYCLOBENZAPRINE HYDROCHLORIDE. [Concomitant]
     Active Substance: CYCLOBENZAPRINE HYDROCHLORIDE
     Indication: MUSCLE SPASMS
     Dosage: 1 DF, TID, PRN
     Route: 048
  14. ALLOPURINOL. [Concomitant]
     Active Substance: ALLOPURINOL
     Indication: PRODUCT USED FOR UNKNOWN INDICATION
     Dosage: 2 DF, QD
     Route: 048
  15. LEVAQUIN [Suspect]
     Active Substance: LEVOFLOXACIN
     Indication: PRODUCT USED FOR UNKNOWN INDICATION
     Dosage: 750 MG, Q48H (EVERY 2 DAYS)
     Route: 048
  16. GABAPENTIN. [Concomitant]
     Active Substance: GABAPENTIN
     Indication: PRODUCT USED FOR UNKNOWN INDICATION
     Dosage: 1 DF, QD
     Route: 048
  17. PERCOCET [Concomitant]
     Active Substance: ACETAMINOPHEN\OXYCODONE HYDROCHLORIDE
     Indication: PRODUCT USED FOR UNKNOWN INDICATION
     Dosage: 5 MG TO 325 MG, Q4-6H PRN
     Route: 048
  18. FLEXERIL [Concomitant]
     Active Substance: CYCLOBENZAPRINE HYDROCHLORIDE
     Indication: PRODUCT USED FOR UNKNOWN INDICATION
     Dosage: 10 MG, PRN
     Route: 048
  19. FLORASTOR [Concomitant]
     Active Substance: SACCHAROMYCES CEREVISIAE
     Indication: PRODUCT USED FOR UNKNOWN INDICATION
     Dosage: 250 MG, TID
     Route: 048
  20. LASIX [Concomitant]
     Active Substance: FUROSEMIDE
     Indication: OEDEMA
     Dosage: 1 DF, QD AS NEEDED
     Route: 065
  21. GALZIN [Concomitant]
     Active Substance: ZINC ACETATE
     Indication: PRODUCT USED FOR UNKNOWN INDICATION
     Dosage: 50 M, TID
     Route: 048
  22. HYDRALAZINE [Concomitant]
     Active Substance: HYDRALAZINE HYDROCHLORIDE
     Indication: PRODUCT USED FOR UNKNOWN INDICATION
     Dosage: 75 MG, BID
     Route: 048
  23. TOPROL XL [Concomitant]
     Active Substance: METOPROLOL SUCCINATE
     Indication: PRODUCT USED FOR UNKNOWN INDICATION
     Dosage: 12 MG, QD
     Route: 048
  24. NEURONTIN [Concomitant]
     Active Substance: GABAPENTIN
     Indication: PRODUCT USED FOR UNKNOWN INDICATION
     Route: 065

REACTIONS (81)
  - Cellulitis [Unknown]
  - Spinal compression fracture [Unknown]
  - Blood pressure systolic increased [Unknown]
  - Blast crisis in myelogenous leukaemia [Unknown]
  - Hyperglycaemia [Unknown]
  - Deep vein thrombosis [Unknown]
  - Neutropenia [Unknown]
  - Malignant neoplasm progression [Unknown]
  - Cranial nerve disorder [Unknown]
  - Neuropathy peripheral [Recovering/Resolving]
  - Peripheral swelling [Unknown]
  - Generalised oedema [Unknown]
  - Pallor [Unknown]
  - Hyperkalaemia [Unknown]
  - Amnesia [Unknown]
  - Angina unstable [Unknown]
  - Wound [Unknown]
  - Mucosal discolouration [Unknown]
  - Pyrexia [Unknown]
  - Pollakiuria [Unknown]
  - Constipation [Unknown]
  - Joint swelling [Unknown]
  - Back pain [Not Recovered/Not Resolved]
  - Dehydration [Unknown]
  - Renal failure [Unknown]
  - Colitis ischaemic [Unknown]
  - Chronic kidney disease [Unknown]
  - Cardiac failure congestive [Unknown]
  - Chronic myeloid leukaemia [Unknown]
  - Dysphagia [Unknown]
  - Fatigue [Unknown]
  - Weight increased [Unknown]
  - Blister [Unknown]
  - Platelet count decreased [Unknown]
  - Decreased appetite [Recovering/Resolving]
  - Fluid retention [Unknown]
  - Oedema peripheral [Unknown]
  - Therapy non-responder [Unknown]
  - Confusional state [Unknown]
  - Type 1 diabetes mellitus [Unknown]
  - Anaemia [Unknown]
  - Abscess [Unknown]
  - Wound secretion [Unknown]
  - Dyspnoea [Unknown]
  - Chest pain [Recovered/Resolved]
  - Skin discolouration [Unknown]
  - Respiratory distress [Unknown]
  - Infectious colitis [Recovered/Resolved]
  - Haemorrhage [Unknown]
  - Cardiac failure [Recovering/Resolving]
  - Bone marrow failure [Unknown]
  - Skin warm [Unknown]
  - Pain [Unknown]
  - Cough [Unknown]
  - Wheezing [Unknown]
  - Asthenia [Unknown]
  - Erythema [Unknown]
  - Fall [Unknown]
  - Coronary artery disease [Unknown]
  - Limb injury [Unknown]
  - Contusion [Unknown]
  - Oedema [Recovering/Resolving]
  - Klebsiella infection [Unknown]
  - Stenosis [Unknown]
  - Atrial fibrillation [Unknown]
  - Pericardial effusion [Unknown]
  - Purulent discharge [Unknown]
  - Balance disorder [Unknown]
  - Gout [Recovering/Resolving]
  - Diarrhoea [Unknown]
  - Sciatica [Unknown]
  - Skin exfoliation [Unknown]
  - Blood uric acid increased [Unknown]
  - Dizziness [Unknown]
  - Palpitations [Unknown]
  - Dry skin [Unknown]
  - Drug hypersensitivity [Unknown]
  - Pain in extremity [Unknown]
  - Hypertension [Unknown]
  - Skin ulcer [Recovering/Resolving]
  - Blood creatinine increased [Recovering/Resolving]

NARRATIVE: CASE EVENT DATE: 20120125
